FAERS Safety Report 8436026-0 (Version None)
Quarter: 2012Q2

REPORT INFORMATION
  Report Type: 
  Country: None (occurrence: None)
  Receive Date: 20120608
  Receipt Date: 20120601
  Transmission Date: 20120825
  Serious: Yes (Hospitalization, Other)
  Sender: FDA-Public Use
  Company Number: AUR-APL-2012-02524

PATIENT
  Sex: Female

DRUGS (7)
  1. TOPAMAX [Suspect]
     Indication: CONVULSION
     Dates: start: 20070101
  2. EFFEXOR XR [Suspect]
     Indication: DEPRESSION
     Dosage: 75 MG (75 MG, 1 IN 1 D), ORAL, 150 MG (150 MG, 1 IN 1 D), ORAL
     Route: 048
     Dates: start: 20120301
  3. EFFEXOR XR [Suspect]
     Indication: DEPRESSION
     Dosage: 75 MG (75 MG, 1 IN 1 D), ORAL, 150 MG (150 MG, 1 IN 1 D), ORAL
     Route: 048
     Dates: start: 20120101, end: 20120531
  4. LISINOPRIL [Suspect]
     Indication: HYPERTENSION
  5. CALCIUM CARBONATE [Concomitant]
  6. EFFEXOR [Suspect]
     Indication: DEPRESSION
     Dosage: 37.5 MG (37. 5 MG, 1 IN 1 D), ORAL
     Route: 048
     Dates: start: 20120101, end: 20120301
  7. VITAMINS (VITAMINS NOS) [Concomitant]

REACTIONS (3)
  - DEPRESSION [None]
  - PETIT MAL EPILEPSY [None]
  - GRAND MAL CONVULSION [None]
